FAERS Safety Report 21534525 (Version 1)
Quarter: 2022Q4

REPORT INFORMATION
  Report Type: Spontaneous
  Country: BR (occurrence: BR)
  Receive Date: 20221101
  Receipt Date: 20221101
  Transmission Date: 20230113
  Serious: Yes (Other)
  Sender: FDA-Public Use
  Company Number: BR-009507513-2210BRA010769

PATIENT
  Age: 72 Year
  Sex: Male
  Weight: 84 kg

DRUGS (2)
  1. JANUMET [Suspect]
     Active Substance: METFORMIN HYDROCHLORIDE\SITAGLIPTIN PHOSPHATE
     Indication: Type 2 diabetes mellitus
     Dosage: SITAGLIPTIN PHOSPHATE (+) METFORMIN HYDROCHLORIDE (JANUMET) 50/1000 MG, AS REPORTED, TWO TABLETS DAI
     Route: 048
  2. JANUMET XR [Suspect]
     Active Substance: METFORMIN HYDROCHLORIDE\SITAGLIPTIN PHOSPHATE
     Indication: Type 2 diabetes mellitus
     Dosage: SITAGLIPTIN PHOSPHATE (+) METFORMIN HYDROCHLORIDE (JANUMET XR) 50(+)1000MG ONE TABLET AT NIGHT
     Route: 048
     Dates: start: 20221024

REACTIONS (4)
  - Diabetes mellitus inadequate control [Unknown]
  - Blood pressure abnormal [Unknown]
  - Drug ineffective [Unknown]
  - Intentional dose omission [Unknown]

NARRATIVE: CASE EVENT DATE: 20221001
